FAERS Safety Report 4807584-X (Version None)
Quarter: 2005Q4

REPORT INFORMATION
  Report Type: 
  Country: None (occurrence: None)
  Receive Date: 20051020
  Receipt Date: 20051007
  Transmission Date: 20060501
  Serious: Yes (Death)
  Sender: FDA-Public Use
  Company Number: 2005140504

PATIENT
  Sex: Female

DRUGS (2)
  1. CELEBREX [Suspect]
     Indication: ILL-DEFINED DISORDER
     Dates: start: 19990101
  2. VIOXX [Suspect]
     Indication: ILL-DEFINED DISORDER
     Dates: start: 19990101

REACTIONS (1)
  - CARDIAC DISORDER [None]
